FAERS Safety Report 6873632-9 (Version None)
Quarter: 2010Q3

REPORT INFORMATION
  Report Type: 
  Country: None (occurrence: None)
  Receive Date: 20100723
  Receipt Date: 20090307
  Transmission Date: 20110219
  Serious: Yes (Other)
  Sender: FDA-Public Use
  Company Number: US-PFIZER INC-2009163724

PATIENT
  Sex: Male
  Weight: 62.585 kg

DRUGS (4)
  1. CHANTIX [Suspect]
     Indication: SMOKING CESSATION THERAPY
     Dosage: STARTER PACK
  2. CELEXA [Concomitant]
  3. XANAX [Concomitant]
     Dosage: 0.5 MG, AS NEEDED
  4. ZOLPIDEM [Concomitant]
     Dosage: 10 MG, UNK

REACTIONS (3)
  - AGITATION [None]
  - ANXIETY [None]
  - SELF-INJURIOUS IDEATION [None]
